FAERS Safety Report 4616725-9 (Version None)
Quarter: 2005Q1

REPORT INFORMATION
  Report Type: 
  Country: None (occurrence: None)
  Receive Date: 20050321
  Receipt Date: 20030912
  Transmission Date: 20050727
  Serious: No
  Sender: FDA-Public Use
  Company Number: 6079

PATIENT
  Age: 76 Year
  Sex: Female

DRUGS (3)
  1. AMIODARONE [Suspect]
     Indication: ARRHYTHMIA
     Dosage: 200 MG PO
     Route: 048
     Dates: start: 20020201
  2. PEPPERMINT OIL [Concomitant]
  3. NICORANDIL [Concomitant]

REACTIONS (4)
  - BLISTER [None]
  - PAIN OF SKIN [None]
  - PHOTOSENSITIVITY REACTION [None]
  - RASH [None]
